FAERS Safety Report 20481869 (Version 1)
Quarter: 2022Q1

REPORT INFORMATION
  Report Type: Report from Study
  Country: TW (occurrence: TW)
  Receive Date: 20220216
  Receipt Date: 20220216
  Transmission Date: 20220424
  Serious: Yes (Death, Other)
  Sender: FDA-Public Use
  Company Number: TW-KARYOPHARM-2022KPT000173

PATIENT
  Age: 49 Year
  Sex: Female
  Weight: 52.4 kg

DRUGS (12)
  1. SELINEXOR [Suspect]
     Active Substance: SELINEXOR
     Indication: Plasma cell myeloma
     Dosage: 40 MG, WEEKLY
     Route: 048
     Dates: start: 20211208, end: 20220106
  2. VELCADE [Concomitant]
     Active Substance: BORTEZOMIB
     Indication: Plasma cell myeloma
     Dosage: UNK
     Dates: start: 20211208
  3. DEXAMETHASONE [Concomitant]
     Active Substance: DEXAMETHASONE
     Indication: Plasma cell myeloma
     Dosage: UNK
     Dates: start: 20211208
  4. MORPHINE [Concomitant]
     Active Substance: MORPHINE
     Indication: Pain
     Dosage: 30 MG, Q12H
     Route: 048
     Dates: start: 20211223, end: 20220121
  5. FILGRASTIM [Concomitant]
     Active Substance: FILGRASTIM
     Indication: Neutropenia
     Dosage: 300 UG, QD
     Dates: start: 20220112, end: 20220126
  6. QUETIAPINE [Concomitant]
     Active Substance: QUETIAPINE
     Indication: Delirium
     Dosage: 12.5 MG, QD
     Route: 048
     Dates: start: 20220119, end: 20220126
  7. ATORVASTATIN [Concomitant]
     Active Substance: ATORVASTATIN
     Indication: Hyperlipidaemia
     Dosage: 20 MG, QD
     Route: 048
     Dates: start: 20211224, end: 20220125
  8. FENTANYL TRANSDERMAL SYSTEM [Concomitant]
     Active Substance: FENTANYL
     Indication: Pain
     Dosage: 25 UG, Q72H
     Dates: start: 20220124, end: 20220125
  9. DORIPENEM [Concomitant]
     Active Substance: DORIPENEM
     Indication: Bacteraemia
     Dosage: 500 MG, Q8H
     Dates: start: 20220113, end: 20220119
  10. TEICOPLANIN [Concomitant]
     Active Substance: TEICOPLANIN
     Indication: Bacteraemia
     Dosage: 400 MG, QD
     Dates: start: 20220112, end: 20220119
  11. CELECOXIB [Concomitant]
     Active Substance: CELECOXIB
     Indication: Pain
     Dosage: 200 MG, QD
     Dates: start: 20211223, end: 20220114
  12. ACYCLOVIR [Concomitant]
     Active Substance: ACYCLOVIR
     Indication: Prophylaxis
     Dosage: 200 MG, QD
     Dates: start: 20211223, end: 20220124

REACTIONS (6)
  - Thrombocytopenia [Unknown]
  - Death [Fatal]
  - Neutropenia [Unknown]
  - Anaemia [Unknown]
  - Citrobacter bacteraemia [Unknown]
  - Therapy non-responder [Unknown]

NARRATIVE: CASE EVENT DATE: 20210101
